FAERS Safety Report 9779127 (Version 1)
Quarter: 2013Q4

REPORT INFORMATION
  Report Type: Other
  Country: GR (occurrence: GR)
  Receive Date: 20131223
  Receipt Date: 20131223
  Transmission Date: 20140711
  Serious: Yes (Death)
  Sender: FDA-Public Use
  Company Number: GR-US-EMD SERONO, INC.-7259399

PATIENT
  Sex: 0

DRUGS (1)
  1. SOMATROPIN [Suspect]
     Indication: PRODUCT USED FOR UNKNOWN INDICATION
     Dosage: MEAN DOSE OF 0.034 MG/KG/DAY

REACTIONS (1)
  - Death [Fatal]
